FAERS Safety Report 15230638 (Version 1)
Quarter: 2018Q3

REPORT INFORMATION
  Report Type: Spontaneous
  Country: US (occurrence: US)
  Receive Date: 20180707
  Receipt Date: 20180707
  Transmission Date: 20181010
  Serious: No
  Sender: FDA-Public Use
  Company Number: None

PATIENT
  Age: 63 Year
  Sex: Male
  Weight: 113.4 kg

DRUGS (1)
  1. PENNSAID [Suspect]
     Active Substance: DICLOFENAC SODIUM
     Indication: PLANTAR FASCIITIS
     Route: 061
     Dates: start: 20180706, end: 20180707

REACTIONS (2)
  - Application site pruritus [None]
  - Application site rash [None]

NARRATIVE: CASE EVENT DATE: 20180707
